FAERS Safety Report 14561003 (Version 1)
Quarter: 2018Q1

REPORT INFORMATION
  Report Type: Spontaneous
  Country: US (occurrence: US)
  Receive Date: 20180222
  Receipt Date: 20180222
  Transmission Date: 20180509
  Serious: No
  Sender: FDA-Public Use
  Company Number: US-TEVA-2018-US-860492

PATIENT
  Sex: Female
  Weight: 58 kg

DRUGS (4)
  1. QVAR [Suspect]
     Active Substance: BECLOMETHASONE DIPROPIONATE
     Indication: SINUSITIS
     Route: 045
     Dates: start: 201801
  2. PROAIR RESPICLICK [Suspect]
     Active Substance: ALBUTEROL SULFATE
     Indication: LUNG DISORDER
     Route: 065
  3. OXYGEN. [Concomitant]
     Active Substance: OXYGEN
     Route: 065
  4. NEURONTIN [Concomitant]
     Active Substance: GABAPENTIN
     Route: 065

REACTIONS (4)
  - Drug prescribing error [Unknown]
  - Oropharyngeal pain [Unknown]
  - Vision blurred [Unknown]
  - Product use issue [Unknown]
